FAERS Safety Report 24588860 (Version 2)
Quarter: 2024Q4

REPORT INFORMATION
  Report Type: Spontaneous
  Country: MX (occurrence: MX)
  Receive Date: 20241107
  Receipt Date: 20241113
  Transmission Date: 20250115
  Serious: Yes (Other)
  Sender: STRIDES
  Company Number: MX-STRIDES ARCOLAB LIMITED-2024SP014285

PATIENT
  Age: 39 Year
  Sex: Female

DRUGS (2)
  1. NAPROXEN [Suspect]
     Active Substance: NAPROXEN
     Indication: Product used for unknown indication
     Dosage: UNK, INGESTION
     Route: 048
  2. ACETAMINOPHEN [Suspect]
     Active Substance: ACETAMINOPHEN
     Indication: Diagnostic procedure
     Dosage: UNK, (INCREASING DOSES UP TO 500MG WITH 30-MINUTE INTERVALS)
     Route: 065

REACTIONS (1)
  - Acute generalised exanthematous pustulosis [Unknown]
